FAERS Safety Report 12764863 (Version 1)
Quarter: 2016Q3

REPORT INFORMATION
  Report Type: Other
  Country: TR (occurrence: TR)
  Receive Date: 20160921
  Receipt Date: 20160921
  Transmission Date: 20161109
  Serious: Yes (Other)
  Sender: FDA-Public Use
  Company Number: TR-DEXPHARM-20161924

PATIENT
  Age: 52 Year
  Sex: Female

DRUGS (3)
  1. CIPROFLOXACIN. [Concomitant]
     Active Substance: CIPROFLOXACIN
     Indication: CELLULITIS
     Dosage: 400MG, EVERY 12 HOURS
  2. DICLOFENAC INJECTION [Suspect]
     Active Substance: DICLOFENAC
     Indication: BACK PAIN
  3. AMPICILLIN-SULBACTAM [Concomitant]
     Indication: CELLULITIS
     Dosage: 2G, EVERY 6 HOURS
     Route: 042

REACTIONS (1)
  - Embolia cutis medicamentosa [Recovered/Resolved]
